FAERS Safety Report 10224630 (Version 1)
Quarter: 2014Q2

REPORT INFORMATION
  Report Type: Spontaneous
  Country: US (occurrence: US)
  Receive Date: 20140609
  Receipt Date: 20140609
  Transmission Date: 20141212
  Serious: Yes (Other)
  Sender: FDA-Public Use
  Company Number: US-SA-2014SA072972

PATIENT
  Age: 64 Year
  Sex: Female

DRUGS (2)
  1. TAXOTERE [Suspect]
     Indication: BREAST CANCER
     Dosage: DOSE:75 MG/MM2
     Route: 065
     Dates: start: 201405
  2. CYTOXAN [Suspect]
     Indication: BREAST CANCER
     Route: 065
     Dates: start: 201405

REACTIONS (2)
  - Polymyositis [Not Recovered/Not Resolved]
  - Muscular weakness [Not Recovered/Not Resolved]
